FAERS Safety Report 15299753 (Version 1)
Quarter: 2018Q3

REPORT INFORMATION
  Report Type: Spontaneous
  Country: US (occurrence: US)
  Receive Date: 20180821
  Receipt Date: 20180821
  Transmission Date: 20181010
  Serious: Yes (Other)
  Sender: FDA-Public Use
  Company Number: US-DRREDDYS-USA/USA/18/0103192

PATIENT
  Sex: Female

DRUGS (2)
  1. METOPROLOL SUCCINATE. [Suspect]
     Active Substance: METOPROLOL SUCCINATE
     Indication: PRODUCT USED FOR UNKNOWN INDICATION
     Route: 065
  2. METOPROLOL SUCCINATE. [Suspect]
     Active Substance: METOPROLOL SUCCINATE
     Route: 065

REACTIONS (13)
  - Eye swelling [Recovered/Resolved]
  - Lip swelling [Recovered/Resolved]
  - Dyspnoea [Recovered/Resolved]
  - Angioedema [Recovered/Resolved]
  - Chest discomfort [Unknown]
  - Dyspepsia [Recovered/Resolved]
  - Throat tightness [Recovered/Resolved]
  - Chest pain [Recovered/Resolved]
  - Swelling face [Recovered/Resolved]
  - Hypertonic bladder [Recovered/Resolved]
  - Headache [Recovered/Resolved]
  - Allergic reaction to excipient [Unknown]
  - Hypertension [Recovered/Resolved]
